FAERS Safety Report 12475565 (Version 1)
Quarter: 2016Q2

REPORT INFORMATION
  Report Type: Report from Study
  Country: US (occurrence: US)
  Receive Date: 20160617
  Receipt Date: 20160617
  Transmission Date: 20160815
  Serious: Yes (Other)
  Sender: FDA-Public Use
  Company Number: US-BAYER-2016-092378

PATIENT
  Age: 81 Year
  Sex: Female
  Weight: 120.64 kg

DRUGS (3)
  1. ADEMPAS [Suspect]
     Active Substance: RIOCIGUAT
     Indication: PULMONARY ARTERIAL HYPERTENSION
     Dosage: 1 MG, TID
     Route: 048
  2. ADEMPAS [Suspect]
     Active Substance: RIOCIGUAT
     Indication: PULMONARY ARTERIAL HYPERTENSION
     Dosage: 1.5 MG, TID
     Route: 048
     Dates: end: 20160601
  3. ADEMPAS [Suspect]
     Active Substance: RIOCIGUAT
     Indication: PULMONARY ARTERIAL HYPERTENSION
     Dosage: UNK
     Route: 048
     Dates: start: 20160422

REACTIONS (16)
  - Pain in extremity [None]
  - Headache [Unknown]
  - Feeling abnormal [None]
  - Musculoskeletal disorder [None]
  - Constipation [None]
  - Constipation [Unknown]
  - Balance disorder [None]
  - Haematochezia [None]
  - Abasia [None]
  - Fatigue [None]
  - Asthenia [None]
  - Dizziness [None]
  - Haemorrhoids [Unknown]
  - Pain [None]
  - Alopecia [None]
  - Musculoskeletal pain [None]
